FAERS Safety Report 5312840-5 (Version None)
Quarter: 2007Q2

REPORT INFORMATION
  Report Type: 
  Country: None (occurrence: None)
  Receive Date: 20070430
  Receipt Date: 20070420
  Transmission Date: 20071010
  Serious: Yes (Disabling, Other)
  Sender: FDA-Public Use
  Company Number: DK-ABBOTT-07P-044-0365638-00

PATIENT
  Sex: Female

DRUGS (1)
  1. ZEMPLAR [Suspect]
     Indication: HAEMODIALYSIS
     Route: 042
     Dates: start: 20070301, end: 20070301

REACTIONS (3)
  - CHILLS [None]
  - DISCOMFORT [None]
  - INFLUENZA [None]
